FAERS Safety Report 26085818 (Version 1)
Quarter: 2025Q4

REPORT INFORMATION
  Report Type: Spontaneous
  Country: US (occurrence: US)
  Receive Date: 20251125
  Receipt Date: 20251125
  Transmission Date: 20260117
  Serious: Yes (Other)
  Sender: SUNOVION
  Company Number: US-SMPA-2025SPA015541

PATIENT
  Age: 40 Year
  Sex: Female

DRUGS (1)
  1. MYFEMBREE [Suspect]
     Active Substance: ESTRADIOL HEMIHYDRATE\NORETHINDRONE ACETATE\RELUGOLIX
     Indication: Uterine leiomyoma
     Dosage: UNK
     Route: 048

REACTIONS (4)
  - Suicidal ideation [Not Recovered/Not Resolved]
  - Hypoaesthesia [Not Recovered/Not Resolved]
  - Flank pain [Not Recovered/Not Resolved]
  - Product use issue [Not Recovered/Not Resolved]

NARRATIVE: CASE EVENT DATE: 20251101
